FAERS Safety Report 10973060 (Version 2)
Quarter: 2015Q2

REPORT INFORMATION
  Report Type: Spontaneous
  Country: US (occurrence: US)
  Receive Date: 20150401
  Receipt Date: 20150525
  Transmission Date: 20150821
  Serious: Yes (Other)
  Sender: FDA-Public Use
  Company Number: US-JNJFOC-20131102104

PATIENT
  Sex: Male

DRUGS (2)
  1. RISPERDAL [Suspect]
     Active Substance: RISPERIDONE
     Indication: ENCEPHALOPATHY
     Route: 048
  2. RISPERDAL [Suspect]
     Active Substance: RISPERIDONE
     Indication: AUTISM
     Route: 048

REACTIONS (10)
  - Gynaecomastia [Unknown]
  - Onychophagia [Unknown]
  - Emotional distress [Unknown]
  - Obesity [Unknown]
  - Excessive eye blinking [Unknown]
  - Back disorder [Unknown]
  - Muscle disorder [Unknown]
  - Tardive dyskinesia [Unknown]
  - Abnormal weight gain [Unknown]
  - Motor dysfunction [Unknown]
